FAERS Safety Report 12491246 (Version 1)
Quarter: 2016Q2

REPORT INFORMATION
  Report Type: Spontaneous
  Country: US (occurrence: US)
  Receive Date: 20160623
  Receipt Date: 20160623
  Transmission Date: 20160815
  Serious: Yes (Other)
  Sender: FDA-Public Use
  Company Number: PHEH2016US014689

PATIENT
  Age: 73 Year
  Sex: Male
  Weight: 96 kg

DRUGS (2)
  1. FARYDAK [Suspect]
     Active Substance: PANOBINOSTAT
     Dosage: ONCE WEEKLY
     Route: 048
     Dates: start: 20160204, end: 20160504
  2. FARYDAK [Suspect]
     Active Substance: PANOBINOSTAT
     Indication: PLASMA CELL MYELOMA
     Dosage: 10 MG, 3 TIMES PER WEEK (MONDAY, WEDNESDAYS AND FRIDAYS), 2 WEEKS ON AND 1 WEEK OFF
     Route: 048
     Dates: start: 20151118

REACTIONS (3)
  - Immunoglobulins increased [Unknown]
  - Plasma cell myeloma [Unknown]
  - Malignant neoplasm progression [Unknown]

NARRATIVE: CASE EVENT DATE: 20160316
